FAERS Safety Report 8780395 (Version 1)
Quarter: 2012Q4

REPORT INFORMATION
  Report Type: Spontaneous
  Country: US (occurrence: None)
  Receive Date: 20120905
  Receipt Date: 20120905
  Transmission Date: 20130627
  Serious: Yes (Hospitalization)
  Sender: FDA-Public Use
  Company Number: None

PATIENT
  Age: 26 Month
  Sex: Female
  Weight: 10 kg

DRUGS (1)
  1. METRONIDAZOLE [Suspect]
     Route: 048

REACTIONS (5)
  - Seizure like phenomena [None]
  - Muscle rigidity [None]
  - Eye movement disorder [None]
  - Fatigue [None]
  - Vomiting [None]
